FAERS Safety Report 21945563 (Version 2)
Quarter: 2023Q1

REPORT INFORMATION
  Report Type: Spontaneous
  Country: CA (occurrence: CA)
  Receive Date: 20230202
  Receipt Date: 20230207
  Transmission Date: 20230418
  Serious: Yes (Other)
  Sender: FDA-Public Use
  Company Number: CA-AMERICAN REGENT INC-2023000232

PATIENT
  Sex: Female

DRUGS (1)
  1. VENOFER [Suspect]
     Active Substance: IRON SUCROSE
     Indication: Anaemia
     Dosage: 300 MILLIGRAM EVERY 7 DAYS
     Route: 042
     Dates: start: 20230112, end: 20230112

REACTIONS (5)
  - Burning sensation [Recovered/Resolved]
  - Rash macular [Recovered/Resolved]
  - Pain in extremity [Recovered/Resolved]
  - Product quality issue [Unknown]
  - Off label use [Recovered/Resolved]

NARRATIVE: CASE EVENT DATE: 20230112
